FAERS Safety Report 6524699-9 (Version None)
Quarter: 2009Q4

REPORT INFORMATION
  Report Type: 
  Country: None (occurrence: None)
  Receive Date: 20091222
  Receipt Date: 20091207
  Transmission Date: 20100525
  Serious: Yes (Other)
  Sender: FDA-Public Use
  Company Number: 1000009454

PATIENT
  Age: 35 Year
  Sex: Female
  Weight: 48 kg

DRUGS (5)
  1. ESCITALOPRAM OXALATE [Suspect]
     Indication: DEPRESSION
     Dosage: 10 MG (10 MG, 1 IN 1 D), ORAL
     Route: 048
     Dates: start: 20090511, end: 20091005
  2. AUGMENTIN [Concomitant]
  3. BACILOR [Concomitant]
  4. PNEUMOREL [Concomitant]
  5. RUBOZINC [Concomitant]

REACTIONS (8)
  - ABDOMINAL PAIN [None]
  - CANDIDIASIS [None]
  - CONSTIPATION [None]
  - CULTURE STOOL POSITIVE [None]
  - DIARRHOEA [None]
  - FLATULENCE [None]
  - GASTROINTESTINAL DISORDER [None]
  - RECTAL HAEMORRHAGE [None]
